FAERS Safety Report 17253625 (Version 1)
Quarter: 2020Q1

REPORT INFORMATION
  Report Type: Spontaneous
  Country: CA (occurrence: CA)
  Receive Date: 20200109
  Receipt Date: 20200109
  Transmission Date: 20200409
  Serious: Yes (Other)
  Sender: FDA-Public Use
  Company Number: CA-ABBVIE-20K-028-3222066-00

PATIENT
  Sex: Female

DRUGS (9)
  1. FOLIC ACID. [Concomitant]
     Active Substance: FOLIC ACID
     Indication: PRODUCT USED FOR UNKNOWN INDICATION
     Route: 048
  2. HUMIRA [Suspect]
     Active Substance: ADALIMUMAB
     Indication: PRODUCT USED FOR UNKNOWN INDICATION
     Route: 058
  3. APO-METHOTREXATE [Concomitant]
     Active Substance: METHOTREXATE
     Indication: PRODUCT USED FOR UNKNOWN INDICATION
     Route: 048
  4. APO-PREDNISONE [Concomitant]
     Active Substance: PREDNISONE
     Indication: PRODUCT USED FOR UNKNOWN INDICATION
     Route: 048
  5. ZANTAC [Concomitant]
     Active Substance: RANITIDINE HYDROCHLORIDE
     Indication: PRODUCT USED FOR UNKNOWN INDICATION
     Route: 065
  6. ADVIL [Suspect]
     Active Substance: IBUPROFEN
     Indication: PRODUCT USED FOR UNKNOWN INDICATION
     Dosage: AS NEEDED OCCASIONALLY
     Route: 065
  7. PREDNISONE. [Concomitant]
     Active Substance: PREDNISONE
     Indication: PRODUCT USED FOR UNKNOWN INDICATION
     Dosage: DAILY WITH TAPER WEEKLY
     Route: 065
  8. CRESTOR [Concomitant]
     Active Substance: ROSUVASTATIN CALCIUM
     Indication: PRODUCT USED FOR UNKNOWN INDICATION
     Route: 048
  9. METHOTREXATE. [Concomitant]
     Active Substance: METHOTREXATE
     Indication: PRODUCT USED FOR UNKNOWN INDICATION
     Route: 048

REACTIONS (29)
  - Inguinal hernia [Not Recovered/Not Resolved]
  - Fatigue [Unknown]
  - Joint swelling [Unknown]
  - Groin pain [Unknown]
  - Iritis [Unknown]
  - Hysterectomy [Unknown]
  - Back pain [Not Recovered/Not Resolved]
  - Nephrolithiasis [Unknown]
  - Colitis [Unknown]
  - Uveitis [Unknown]
  - Pain [Unknown]
  - Enthesopathy [Unknown]
  - Ankylosing spondylitis [Unknown]
  - Antinuclear antibody [Unknown]
  - Musculoskeletal stiffness [Unknown]
  - Ovarian cyst [Unknown]
  - Bowel movement irregularity [Unknown]
  - Sacroiliitis [Unknown]
  - Lymphadenopathy [Unknown]
  - Helicobacter gastritis [Unknown]
  - Enteritis [Unknown]
  - Arthralgia [Unknown]
  - Hepatic cyst [Unknown]
  - Inflammatory bowel disease [Unknown]
  - Adnexa uteri cyst [Unknown]
  - Rash [Unknown]
  - Flank pain [Unknown]
  - Abdominal pain [Unknown]
  - Abdominal discomfort [Unknown]
